FAERS Safety Report 23133262 (Version 5)
Quarter: 2024Q3

REPORT INFORMATION
  Report Type: Report from Study
  Country: US (occurrence: US)
  Receive Date: 20231101
  Receipt Date: 20240925
  Transmission Date: 20241016
  Serious: Yes (Other)
  Sender: TAKEDA
  Company Number: US-TAKEDA-2023TUS103935

PATIENT
  Age: 46 Year
  Sex: Male
  Weight: 100 kg

DRUGS (11)
  1. HUMAN IMMUNOGLOBULIN G [Suspect]
     Active Substance: HUMAN IMMUNOGLOBULIN G
     Indication: Hypogammaglobulinaemia
     Dosage: 50 GRAM, Q4WEEKS
     Route: 042
  2. HUMAN IMMUNOGLOBULIN G [Suspect]
     Active Substance: HUMAN IMMUNOGLOBULIN G
     Indication: Hypogammaglobulinaemia
     Dosage: 50 GRAM, Q4WEEKS
     Route: 042
  3. HUMAN IMMUNOGLOBULIN G [Suspect]
     Active Substance: HUMAN IMMUNOGLOBULIN G
     Indication: Immunodeficiency common variable
     Dosage: 50 GRAM, Q4WEEKS
     Route: 042
  4. HUMAN IMMUNOGLOBULIN G [Suspect]
     Active Substance: HUMAN IMMUNOGLOBULIN G
     Indication: Immunodeficiency common variable
     Dosage: 50 GRAM, Q4WEEKS
     Route: 042
  5. HUMAN IMMUNOGLOBULIN G [Suspect]
     Active Substance: HUMAN IMMUNOGLOBULIN G
     Indication: Primary immunodeficiency syndrome
     Dosage: 50 GRAM, Q4WEEKS
     Route: 042
  6. HUMAN IMMUNOGLOBULIN G [Suspect]
     Active Substance: HUMAN IMMUNOGLOBULIN G
     Indication: Primary immunodeficiency syndrome
     Dosage: 50 GRAM, Q4WEEKS
     Route: 042
  7. HUMAN IMMUNOGLOBULIN G [Suspect]
     Active Substance: HUMAN IMMUNOGLOBULIN G
     Dosage: UNK UNK, MONTHLY
     Route: 042
     Dates: start: 2010
  8. HUMAN IMMUNOGLOBULIN G [Suspect]
     Active Substance: HUMAN IMMUNOGLOBULIN G
     Dosage: UNK UNK, MONTHLY
     Route: 042
     Dates: start: 2010
  9. HUMAN IMMUNOGLOBULIN G [Suspect]
     Active Substance: HUMAN IMMUNOGLOBULIN G
     Dosage: 40 GRAM, MONTHLY
     Route: 042
  10. HUMAN IMMUNOGLOBULIN G [Suspect]
     Active Substance: HUMAN IMMUNOGLOBULIN G
     Dosage: 40 GRAM, MONTHLY
     Route: 042
  11. LEVOTHYROXINE [Concomitant]
     Active Substance: LEVOTHYROXINE\LEVOTHYROXINE SODIUM
     Indication: Hypothyroidism
     Dosage: 150 MICROGRAM, QD
     Route: 065

REACTIONS (5)
  - Suspected product contamination [Recovered/Resolved]
  - Infusion related hypersensitivity reaction [Unknown]
  - Blood immunoglobulin A increased [Unknown]
  - Infusion related reaction [Unknown]
  - Malaise [Recovered/Resolved]

NARRATIVE: CASE EVENT DATE: 20231012
